FAERS Safety Report 6027207-4 (Version None)
Quarter: 2009Q1

REPORT INFORMATION
  Report Type: 
  Country: None (occurrence: None)
  Receive Date: 20090105
  Receipt Date: 20090105
  Transmission Date: 20090719
  Serious: Yes (Other)
  Sender: FDA-Public Use
  Company Number: A0762118A

PATIENT
  Age: 37 Year
  Sex: Male

DRUGS (1)
  1. ALLI [Suspect]
     Indication: WEIGHT CONTROL
     Route: 048
     Dates: start: 20081229

REACTIONS (1)
  - NEPHROLITHIASIS [None]
